FAERS Safety Report 23942578 (Version 1)
Quarter: 2024Q2

REPORT INFORMATION
  Report Type: Spontaneous
  Country: US (occurrence: US)
  Receive Date: 20240605
  Receipt Date: 20240605
  Transmission Date: 20240716
  Serious: No
  Sender: FDA-Public Use
  Company Number: US-BRISTOL-MYERS SQUIBB COMPANY-2024-081236

PATIENT
  Age: 88 Year
  Sex: Male
  Weight: 104.33 kg

DRUGS (4)
  1. ELIQUIS [Interacting]
     Active Substance: APIXABAN
     Indication: Product used for unknown indication
  2. ELIQUIS [Interacting]
     Active Substance: APIXABAN
  3. FINASTERIDE [Interacting]
     Active Substance: FINASTERIDE
     Indication: Product used for unknown indication
  4. KRAZATI [Interacting]
     Active Substance: ADAGRASIB
     Indication: Product used for unknown indication

REACTIONS (3)
  - Dizziness postural [Unknown]
  - Peripheral swelling [Unknown]
  - Drug interaction [Unknown]
